FAERS Safety Report 6480153-4 (Version None)
Quarter: 2009Q4

REPORT INFORMATION
  Report Type: 
  Country: None (occurrence: None)
  Receive Date: 20091208
  Receipt Date: 20091130
  Transmission Date: 20100525
  Serious: Yes (Other)
  Sender: FDA-Public Use
  Company Number: US-JNJFOC-20091200877

PATIENT
  Sex: Female
  Weight: 63.5 kg

DRUGS (11)
  1. DURAGESIC-100 [Suspect]
     Indication: FIBROMYALGIA
     Route: 062
  2. DURAGESIC-100 [Suspect]
     Route: 062
  3. LEVOTHYROXINE SODIUM [Concomitant]
     Indication: THYROID DISORDER
     Route: 048
  4. LUMIGAN [Concomitant]
     Indication: GLAUCOMA
     Dosage: 1 DROP TO EACH EYE
     Route: 031
  5. ALPRAZOLAM [Concomitant]
     Indication: DEPRESSION
     Route: 048
  6. TIZANIDINE HCL [Concomitant]
     Indication: DEPRESSION
     Route: 048
  7. ZOLOFT [Concomitant]
     Indication: DEPRESSION
     Route: 048
  8. LIDODERM [Concomitant]
     Indication: PAIN
     Route: 065
  9. AVAPRO [Concomitant]
     Indication: BLOOD PRESSURE
     Route: 048
  10. NORVASC [Concomitant]
     Indication: BLOOD PRESSURE
     Route: 048
  11. ALTACE [Concomitant]
     Indication: BLOOD PRESSURE
     Route: 048

REACTIONS (6)
  - APPLICATION SITE ERYTHEMA [None]
  - ATRIAL FIBRILLATION [None]
  - BODY HEIGHT DECREASED [None]
  - INADEQUATE ANALGESIA [None]
  - VITAMIN B12 DEFICIENCY [None]
  - VITAMIN D DEFICIENCY [None]
